APPROVED DRUG PRODUCT: ATROVENT
Active Ingredient: IPRATROPIUM BROMIDE
Strength: 0.02% **Federal Register determination that product was not discontinued or withdrawn for safety or effectiveness reasons**
Dosage Form/Route: SOLUTION;INHALATION
Application: N020228 | Product #001
Applicant: BOEHRINGER INGELHEIM PHARMACEUTICALS INC
Approved: Sep 29, 1993 | RLD: Yes | RS: No | Type: DISCN